FAERS Safety Report 10218715 (Version 5)
Quarter: 2014Q3

REPORT INFORMATION
  Report Type: Report from Study
  Country: JP (occurrence: JP)
  Receive Date: 20140605
  Receipt Date: 20140731
  Transmission Date: 20150326
  Serious: Yes (Death, Life-Threatening)
  Sender: FDA-Public Use
  Company Number: PHHY2013JP125989

PATIENT
  Age: 84 Year
  Sex: Female

DRUGS (15)
  1. ZYLORIC [Concomitant]
     Active Substance: ALLOPURINOL
     Indication: HYPERURICAEMIA
     Dosage: 1 DF, UNK
     Route: 048
     Dates: end: 20130129
  2. NITRODERM [Concomitant]
     Active Substance: NITROGLYCERIN
     Indication: ANGINA PECTORIS
     Dosage: 1 DF, UNK
     Dates: end: 20130129
  3. SIGMART [Concomitant]
     Active Substance: NICORANDIL
     Indication: ANGINA PECTORIS
     Dosage: 3 DF, UNK
     Route: 048
     Dates: end: 20130129
  4. ITOROL [Concomitant]
     Active Substance: ISOSORBIDE MONONITRATE
     Indication: ANGINA PECTORIS
     Dosage: 2 DF, UNK
     Route: 048
     Dates: end: 20130129
  5. EPADEL-S [Concomitant]
     Active Substance: ETHYL ICOSAPENTATE\ICOSAPENT
     Indication: HYPERLIPIDAEMIA
     Dosage: 2 DF, UNK
     Route: 048
     Dates: end: 20130129
  6. SELBEX [Concomitant]
     Active Substance: TEPRENONE
     Indication: GASTRITIS
     Dosage: 3 DF, UNK
     Route: 048
     Dates: end: 20130129
  7. HALFDIGOXIN [Concomitant]
     Active Substance: DIGOXIN
     Indication: ANGINA PECTORIS
     Dosage: 1 DF, UNK
     Route: 048
     Dates: end: 20130129
  8. LUPRAC [Concomitant]
     Active Substance: TORSEMIDE
     Indication: CARDIAC FAILURE CONGESTIVE
     Dosage: 1 DF, UNK
     Route: 048
     Dates: end: 20130129
  9. EXELON [Suspect]
     Active Substance: RIVASTIGMINE TARTRATE
     Indication: DEMENTIA ALZHEIMER^S TYPE
     Dosage: 4.5 MG, DAILY
     Route: 062
     Dates: start: 20121122, end: 20121219
  10. EXELON [Suspect]
     Active Substance: RIVASTIGMINE TARTRATE
     Dosage: 13.5 MG, DAILY
     Route: 062
     Dates: start: 20130117, end: 20130205
  11. WARFARIN [Concomitant]
     Active Substance: WARFARIN
     Indication: PROPHYLAXIS
     Dosage: 1.5 DF, UNK
     Route: 048
     Dates: end: 20130129
  12. ASPARA POTASSIUM [Concomitant]
     Active Substance: POTASSIUM ASPARTATE
     Indication: PROPHYLAXIS
     Dosage: 9 DF, UNK
     Route: 048
     Dates: end: 20130129
  13. DESYREL [Concomitant]
     Active Substance: TRAZODONE HYDROCHLORIDE
     Indication: DEPRESSION
     Dosage: 3 DF, UNK
     Route: 048
     Dates: end: 20130129
  14. EXELON [Suspect]
     Active Substance: RIVASTIGMINE TARTRATE
     Dosage: 9 MG, DAILY
     Route: 062
     Dates: start: 20121220, end: 20130116
  15. URSO [Concomitant]
     Active Substance: URSODIOL
     Indication: HAEMANGIOMA OF LIVER
     Dosage: 3 DF, UNK
     Route: 048
     Dates: end: 20130129

REACTIONS (2)
  - Pneumonia [Fatal]
  - Respiratory disorder [Fatal]

NARRATIVE: CASE EVENT DATE: 201301
